FAERS Safety Report 15833842 (Version 1)
Quarter: 2019Q1

REPORT INFORMATION
  Report Type: Spontaneous
  Country: JP (occurrence: JP)
  Receive Date: 20190116
  Receipt Date: 20190116
  Transmission Date: 20190417
  Serious: Yes (Hospitalization)
  Sender: FDA-Public Use
  Company Number: JP-GILEAD-2019-0383795

PATIENT
  Age: 87 Year
  Sex: Female

DRUGS (1)
  1. VEMLIDY [Suspect]
     Active Substance: TENOFOVIR ALAFENAMIDE FUMARATE
     Indication: PROPHYLAXIS
     Dosage: 25 MG
     Route: 048

REACTIONS (2)
  - Off label use [Not Recovered/Not Resolved]
  - Jaw operation [Unknown]
